FAERS Safety Report 14061917 (Version 1)
Quarter: 2017Q4

REPORT INFORMATION
  Report Type: Spontaneous
  Country: US (occurrence: US)
  Receive Date: 20171009
  Receipt Date: 20171009
  Transmission Date: 20180321
  Serious: Yes (Hospitalization)
  Sender: FDA-Public Use
  Company Number: US-SUN PHARMACEUTICAL INDUSTRIES LTD-2017US-151613

PATIENT
  Age: 40 Year
  Sex: Female

DRUGS (6)
  1. DIPHENHYDRAMINE. [Suspect]
     Active Substance: DIPHENHYDRAMINE
     Indication: MUSCULOSKELETAL STIFFNESS
     Dosage: UNK
     Route: 065
  2. DIPHENHYDRAMINE. [Suspect]
     Active Substance: DIPHENHYDRAMINE
     Indication: UNRESPONSIVE TO STIMULI
  3. LORAZEPAM. [Suspect]
     Active Substance: LORAZEPAM
     Indication: MOVEMENT DISORDER
  4. LORAZEPAM. [Suspect]
     Active Substance: LORAZEPAM
     Indication: MUSCULOSKELETAL STIFFNESS
     Dosage: UNK
     Route: 065
  5. LORAZEPAM. [Suspect]
     Active Substance: LORAZEPAM
     Indication: UNRESPONSIVE TO STIMULI
  6. DIPHENHYDRAMINE. [Suspect]
     Active Substance: DIPHENHYDRAMINE
     Indication: MOVEMENT DISORDER

REACTIONS (1)
  - Therapeutic response decreased [Unknown]
